FAERS Safety Report 8099461-9 (Version None)
Quarter: 2012Q1

REPORT INFORMATION
  Report Type: 
  Country: None (occurrence: None)
  Receive Date: 20120129
  Receipt Date: 20111005
  Transmission Date: 20120608
  Serious: Yes (Other)
  Sender: FDA-Public Use
  Company Number: US-ABBOTT-11P-163-0861849-00

PATIENT
  Sex: Male
  Weight: 76.726 kg

DRUGS (2)
  1. PENTASA [Concomitant]
     Indication: CROHN'S DISEASE
  2. HUMIRA [Suspect]
     Indication: CROHN'S DISEASE
     Route: 058
     Dates: start: 20110401

REACTIONS (2)
  - GASTROINTESTINAL HAEMORRHAGE [None]
  - CROHN'S DISEASE [None]
